FAERS Safety Report 14175711 (Version 1)
Quarter: 2017Q4

REPORT INFORMATION
  Report Type: Spontaneous
  Country: US (occurrence: US)
  Receive Date: 20171109
  Receipt Date: 20171109
  Transmission Date: 20180321
  Serious: Yes (Hospitalization)
  Sender: FDA-Public Use
  Company Number: US-BRAINTREE LABORATORIES-170621

PATIENT
  Age: 73 Year
  Sex: Female
  Weight: 70.31 kg

DRUGS (1)
  1. SUPREP BOWEL PREP [Suspect]
     Active Substance: MAGNESIUM SULFATE\POTASSIUM SULFATE\SODIUM SULFATE
     Indication: COLONOSCOPY
     Dosage: 1 X 6 OZ. BOTTLE
     Route: 048
     Dates: start: 20171018, end: 20171018

REACTIONS (14)
  - Blood pressure increased [None]
  - Blood calcium decreased [None]
  - Dyspnoea [None]
  - Dehydration [None]
  - Hyponatraemia [None]
  - Monocyte percentage decreased [None]
  - Protein total decreased [None]
  - Hypokalaemia [None]
  - Nausea [None]
  - Blood phosphorus decreased [None]
  - Vomiting [None]
  - Monocyte count increased [None]
  - Blood sodium increased [None]
  - Blood glucose increased [None]

NARRATIVE: CASE EVENT DATE: 20171018
